FAERS Safety Report 6240763-6 (Version None)
Quarter: 2009Q2

REPORT INFORMATION
  Report Type: 
  Country: None (occurrence: None)
  Receive Date: 20090623
  Receipt Date: 20090610
  Transmission Date: 20091009
  Serious: Yes (Hospitalization)
  Sender: FDA-Public Use
  Company Number: US-PFIZER INC-2009226447

PATIENT
  Sex: Male
  Weight: 106.58 kg

DRUGS (2)
  1. CHANTIX [Suspect]
     Indication: SMOKING CESSATION THERAPY
     Dosage: 1 MG, 2X/DAY
     Dates: start: 20090501, end: 20090610
  2. TRILEPTAL [Concomitant]
     Dosage: UNK

REACTIONS (4)
  - AGITATION [None]
  - GRAND MAL CONVULSION [None]
  - IRRITABILITY [None]
  - MEMORY IMPAIRMENT [None]
